FAERS Safety Report 6474434-8 (Version None)
Quarter: 2009Q4

REPORT INFORMATION
  Report Type: 
  Country: None (occurrence: None)
  Receive Date: 20091204
  Receipt Date: 20091124
  Transmission Date: 20100525
  Serious: Yes (Hospitalization)
  Sender: FDA-Public Use
  Company Number: US-ELI_LILLY_AND_COMPANY-US200910002505

PATIENT
  Sex: Female
  Weight: 82.54 kg

DRUGS (24)
  1. BYETTA [Suspect]
     Indication: TYPE 2 DIABETES MELLITUS
     Dosage: 5 UG, 2/D
     Route: 058
     Dates: start: 20090818, end: 20091026
  2. GLIPIZIDE [Concomitant]
     Indication: TYPE 2 DIABETES MELLITUS
     Dosage: 10 MG, DAILY (1/D)
     Route: 048
  3. ALDACTONE [Concomitant]
     Dosage: 25 MG, DAILY (1/D)
     Route: 048
  4. LASIX [Concomitant]
     Dosage: 40 MG, DAILY (1/D)
     Route: 048
  5. ASPIRIN [Concomitant]
     Dosage: 325 MG, DAILY (1/D)
     Route: 048
  6. RHINOCORT [Concomitant]
     Dosage: 0.032 MG, DAILY (1/D)
     Route: 055
  7. CALTRATE + VITAMIN D [Concomitant]
     Dosage: UNK, 2/D
     Route: 048
  8. VITAMIN D [Concomitant]
     Dosage: 50000 IU, WEEKLY (1/W)
     Route: 048
  9. VITAMIN D [Concomitant]
     Dosage: 50000 IU, MONTHLY (1/M)
     Route: 048
  10. PLAVIX [Concomitant]
     Dosage: 75 MG, DAILY (1/D)
     Route: 048
  11. IMDUR [Concomitant]
     Dosage: 60 MG, EACH MORNING
     Route: 048
  12. IMDUR [Concomitant]
     Dosage: 30 MG, EACH MORNING
     Route: 048
  13. CENTRUM SILVER [Concomitant]
     Dosage: UNK, DAILY (1/D)
     Route: 048
  14. IRON [Concomitant]
     Dosage: 240 MG, DAILY (1/D)
     Route: 048
  15. EXFORGE                            /01634301/ [Concomitant]
     Dosage: UNK, DAILY (1/D)
     Route: 048
  16. NASONEX [Concomitant]
     Dosage: 100 UG, DAILY (1/D)
     Route: 055
  17. NITROGLYCERIN [Concomitant]
     Dosage: 0.4 MG, AS NEEDED
     Route: 060
  18. SYNTHROID [Concomitant]
     Dosage: 150 UG, DAILY (1/D)
     Route: 048
  19. ADVAIR DISKUS 100/50 [Concomitant]
     Dosage: UNK, 2/D
     Route: 055
  20. LOPRESSOR [Concomitant]
     Dosage: 50 MG, DAILY (1/D)
     Dates: end: 20090101
  21. CRESTOR /01588602/ [Concomitant]
     Dosage: 20 MG, DAILY (1/D)
     Dates: end: 20090101
  22. ACTOS /SCH/ [Concomitant]
     Dosage: 30 MG, DAILY (1/D)
     Dates: end: 20091101
  23. LOVAZA [Concomitant]
     Dosage: UNK, DAILY (1/D)
  24. VOLTAREN [Concomitant]
     Dosage: 2 G, 4/D
     Route: 061

REACTIONS (13)
  - AORTIC VALVE INCOMPETENCE [None]
  - CHEST PAIN [None]
  - CREATININE RENAL CLEARANCE DECREASED [None]
  - DECREASED APPETITE [None]
  - DIZZINESS [None]
  - EJECTION FRACTION DECREASED [None]
  - ELECTROCARDIOGRAM T WAVE INVERSION [None]
  - MITRAL VALVE INCOMPETENCE [None]
  - MYOCARDIAL INFARCTION [None]
  - NAUSEA [None]
  - OEDEMA PERIPHERAL [None]
  - VENTRICULAR HYPOKINESIA [None]
  - WEIGHT DECREASED [None]
